FAERS Safety Report 9215743 (Version 2)
Quarter: 2013Q2

REPORT INFORMATION
  Report Type: Spontaneous
  Country: US (occurrence: US)
  Receive Date: 20130408
  Receipt Date: 20130605
  Transmission Date: 20140414
  Serious: Yes (Hospitalization)
  Sender: FDA-Public Use
  Company Number: US-BIOGENIDEC-2013BI030028

PATIENT
  Age: 68 Year
  Sex: Male

DRUGS (1)
  1. TYSABRI [Suspect]
     Indication: MULTIPLE SCLEROSIS
     Route: 042
     Dates: start: 20090904

REACTIONS (4)
  - Pulmonary embolism [Recovered/Resolved]
  - Staphylococcal infection [Recovered/Resolved]
  - Hypoxia [Recovered/Resolved]
  - Aspiration [Recovered/Resolved]
